FAERS Safety Report 19361997 (Version 2)
Quarter: 2021Q2

REPORT INFORMATION
  Report Type: Spontaneous
  Country: US (occurrence: US)
  Receive Date: 20210601
  Receipt Date: 20210630
  Transmission Date: 20210717
  Serious: Yes (Other)
  Sender: FDA-Public Use
  Company Number: US-PFIZER INC-2021546965

PATIENT
  Age: 72 Year
  Sex: Female
  Weight: 69.4 kg

DRUGS (12)
  1. PREDNISONE. [Concomitant]
     Active Substance: PREDNISONE
     Indication: POLYCHONDRITIS
     Dosage: 20 MG
  2. METHADONE [Concomitant]
     Active Substance: METHADONE HYDROCHLORIDE
     Indication: RESTLESS LEGS SYNDROME
     Dosage: 5 MG, 2X/DAY
  3. XELJANZ XR [Suspect]
     Active Substance: TOFACITINIB CITRATE
     Dosage: 11 MG, DAILY (11MG TAKES 1 PILL IN THE MORNING EVERY MORNING  )
  4. BUPROPION. [Concomitant]
     Active Substance: BUPROPION
     Indication: ANXIETY
     Dosage: 150 MG, DAILY (ONCE A DAY)
  5. BUPROPION. [Concomitant]
     Active Substance: BUPROPION
     Indication: DEPRESSION
  6. XELJANZ XR [Suspect]
     Active Substance: TOFACITINIB CITRATE
     Indication: ARTHRALGIA
     Dosage: 11 MG, 1X/DAY (ONCE EVERY DAY IN THE MORNING)
     Route: 048
  7. PREDNISONE. [Concomitant]
     Active Substance: PREDNISONE
     Dosage: 10 MG
  8. ROSUVASTATIN. [Concomitant]
     Active Substance: ROSUVASTATIN
     Indication: BLOOD CHOLESTEROL INCREASED
     Dosage: 40 MG, DAILY
     Dates: start: 2012
  9. EZETIMIBE. [Concomitant]
     Active Substance: EZETIMIBE
     Indication: BLOOD CHOLESTEROL ABNORMAL
     Dosage: UNK
  10. RAMIPRIL. [Concomitant]
     Active Substance: RAMIPRIL
     Dosage: 5 MG, DAILY (ONCE A DAY)
     Dates: start: 2012
  11. PREDNISONE. [Concomitant]
     Active Substance: PREDNISONE
     Dosage: 5 MG, 1X/DAY
     Dates: start: 2007
  12. CARVEDILOL. [Concomitant]
     Active Substance: CARVEDILOL
     Indication: MYOCARDIAL INFARCTION
     Dosage: 6.25 MG, 2X/DAY
     Dates: start: 201210

REACTIONS (3)
  - Rheumatoid arthritis [Unknown]
  - Feeling abnormal [Unknown]
  - Arthralgia [Unknown]

NARRATIVE: CASE EVENT DATE: 20210519
